FAERS Safety Report 5119759-3 (Version None)
Quarter: 2006Q3

REPORT INFORMATION
  Report Type: 
  Country: None (occurrence: None)
  Receive Date: 20060928
  Receipt Date: 20060915
  Transmission Date: 20061208
  Serious: Yes (Other)
  Sender: FDA-Public Use
  Company Number: 2006112957

PATIENT
  Age: 71 Year
  Sex: Female

DRUGS (3)
  1. LYRICA [Suspect]
     Indication: NEUROPATHY PERIPHERAL
     Dosage: 300 MG (100 MG,3 IN 1 D), ORAL
     Route: 048
     Dates: start: 20060601
  2. NEURONTIN [Suspect]
     Indication: NEUROPATHY PERIPHERAL
  3. CORTICOSTEROID NOS (CORTICOSTEROID NOS) [Suspect]
     Indication: NEOPLASM MALIGNANT

REACTIONS (4)
  - CATARACT SUBCAPSULAR [None]
  - DRUG INEFFECTIVE [None]
  - MACULAR OEDEMA [None]
  - OEDEMA PERIPHERAL [None]
